FAERS Safety Report 20062591 (Version 2)
Quarter: 2022Q1

REPORT INFORMATION
  Report Type: Spontaneous
  Country: US (occurrence: US)
  Receive Date: 20211112
  Receipt Date: 20220208
  Transmission Date: 20220423
  Serious: Yes (Hospitalization, Other)
  Sender: FDA-Public Use
  Company Number: US-SA-2020SA178543

PATIENT
  Age: 81 Year
  Sex: Female

DRUGS (2)
  1. DRONEDARONE [Suspect]
     Active Substance: DRONEDARONE
     Dosage: 400 MG, Q12H
  2. PROPAFENONE [Concomitant]
     Active Substance: PROPAFENONE
     Dosage: 150 MG, TID

REACTIONS (10)
  - Cardiac disorder [Unknown]
  - Product dose omission issue [Unknown]
  - Product availability issue [Unknown]
  - Intra-abdominal haemorrhage [Unknown]
  - Loss of consciousness [Unknown]
  - Splenic injury [Unknown]
  - Herpes zoster [Unknown]
  - Illness [Not Recovered/Not Resolved]
  - Fear [Unknown]
  - Inappropriate schedule of product administration [Unknown]

NARRATIVE: CASE EVENT DATE: 20180101
